FAERS Safety Report 9240740 (Version 1)
Quarter: 2013Q2

REPORT INFORMATION
  Report Type: Spontaneous
  Country: US (occurrence: US)
  Receive Date: 20130418
  Receipt Date: 20130418
  Transmission Date: 20140414
  Serious: Yes (Hospitalization)
  Sender: FDA-Public Use
  Company Number: US-SANOFI-AVENTIS-2012SA089380

PATIENT
  Age: 65 Year
  Sex: Male

DRUGS (7)
  1. LOVENOX [Suspect]
     Indication: DEEP VEIN THROMBOSIS
     Route: 065
     Dates: start: 20121119
  2. VENOFER [Concomitant]
     Indication: IRON DEFICIENCY ANAEMIA
     Dosage: 200 MG OVER 30 MINUTES
     Route: 041
     Dates: start: 20121113, end: 20121117
  3. METFORMIN [Concomitant]
     Route: 048
  4. HYDROCHLOROTHIAZIDE WITH TRIAMTERENE [Concomitant]
     Route: 048
  5. SIMVASTATIN [Concomitant]
     Route: 048
  6. CYMBALTA [Concomitant]
     Route: 048
  7. ARMOUR THYROID [Concomitant]
     Route: 048

REACTIONS (1)
  - Gastrointestinal haemorrhage [Not Recovered/Not Resolved]
